FAERS Safety Report 4589876-5 (Version None)
Quarter: 2005Q1

REPORT INFORMATION
  Report Type: 
  Country: None (occurrence: None)
  Receive Date: 20050125
  Receipt Date: 20040813
  Transmission Date: 20050727
  Serious: No
  Sender: FDA-Public Use
  Company Number: USA040875420

PATIENT
  Age: 77 Year
  Sex: Female
  Weight: 48 kg

DRUGS (3)
  1. FORTEO [Suspect]
     Indication: OSTEOPOROSIS
     Dosage: 20 UG/1 DAY
     Dates: start: 20040811
  2. PREVACID [Concomitant]
  3. MULTIVITAMIN [Concomitant]

REACTIONS (3)
  - DIZZINESS [None]
  - VAGINAL BURNING SENSATION [None]
  - VAGINAL ERYTHEMA [None]
